FAERS Safety Report 8358877-3 (Version None)
Quarter: 2012Q2

REPORT INFORMATION
  Report Type: 
  Country: None (occurrence: None)
  Receive Date: 20120515
  Receipt Date: 20120504
  Transmission Date: 20120825
  Serious: Yes (Hospitalization, Other)
  Sender: FDA-Public Use
  Company Number: US-BIOGENIDEC-2012BI001729

PATIENT
  Sex: Female

DRUGS (11)
  1. REQUIP [Concomitant]
  2. AVONEX [Suspect]
     Indication: MULTIPLE SCLEROSIS
     Route: 030
  3. AMBIEN [Concomitant]
  4. DRAMAMINE [Concomitant]
     Indication: PREMEDICATION
  5. AVONEX [Suspect]
     Route: 030
     Dates: start: 20101213
  6. XANAX [Concomitant]
  7. AVONEX [Suspect]
     Route: 030
     Dates: start: 20101213
  8. BENADRYL [Concomitant]
     Indication: PREMEDICATION
  9. ASPIRIN [Concomitant]
  10. CYMBALTA [Concomitant]
  11. TYLENOL (CAPLET) [Concomitant]
     Indication: PREMEDICATION

REACTIONS (31)
  - OESOPHAGITIS [None]
  - CONVULSION [None]
  - MITRAL VALVE PROLAPSE [None]
  - DIABETES MELLITUS [None]
  - FIBRIN D DIMER INCREASED [None]
  - PLATELET DISORDER [None]
  - CYSTITIS [None]
  - ENTEROVESICAL FISTULA [None]
  - DIVERTICULITIS [None]
  - CHEST PAIN [None]
  - ANGINA PECTORIS [None]
  - AORTIC CALCIFICATION [None]
  - DIVERTICULUM [None]
  - ANXIETY [None]
  - DYSPNOEA [None]
  - CONSTIPATION [None]
  - BLADDER PERFORATION [None]
  - GASTRITIS [None]
  - NAUSEA [None]
  - DEHYDRATION [None]
  - UMBILICAL HERNIA [None]
  - URINARY TRACT INFECTION [None]
  - VOMITING [None]
  - INFLUENZA LIKE ILLNESS [None]
  - HELICOBACTER INFECTION [None]
  - KLEBSIELLA INFECTION [None]
  - BACTERIAL TEST POSITIVE [None]
  - OEDEMA [None]
  - FLUID RETENTION [None]
  - OEDEMA PERIPHERAL [None]
  - HYPERSENSITIVITY [None]
